FAERS Safety Report 4301755-7 (Version None)
Quarter: 2004Q1

REPORT INFORMATION
  Report Type: 
  Country: None (occurrence: None)
  Receive Date: 20040126
  Receipt Date: 20031002
  Transmission Date: 20041129
  Serious: No
  Sender: FDA-Public Use
  Company Number: USA031048869

PATIENT
  Age: 35 Year
  Sex: Female
  Weight: 65 kg

DRUGS (2)
  1. STRATTERA [Suspect]
     Dosage: 40 MG/IN THE MORNING
  2. PROZAC [Suspect]

REACTIONS (4)
  - FEELING ABNORMAL [None]
  - INSOMNIA [None]
  - SLEEP DISORDER [None]
  - SLUGGISHNESS [None]
